FAERS Safety Report 5257750-7 (Version None)
Quarter: 2007Q1

REPORT INFORMATION
  Report Type: 
  Country: None (occurrence: None)
  Receive Date: 20070302
  Receipt Date: 20070221
  Transmission Date: 20070707
  Serious: Yes (Life-Threatening, Hospitalization, Disabling, Other)
  Sender: FDA-Public Use
  Company Number: GXKR2007GB01931

PATIENT
  Age: 67 Year
  Sex: Female

DRUGS (20)
  1. ASPIRIN [Suspect]
     Dosage: SEE IMAGE
     Route: 048
     Dates: start: 20070203
  2. ASPIRIN [Suspect]
     Dosage: SEE IMAGE
     Route: 048
     Dates: start: 20070204
  3. ABCIXIMAB(ABCIXIMAB) [Suspect]
     Dosage: 5000 IU, INTRAVENOUS
     Route: 042
     Dates: start: 20070205
  4. CLOPIDOGREL [Suspect]
     Indication: THROMBOLYSIS
     Dosage: SEE IMAGE
     Route: 048
  5. HEPARIN [Suspect]
     Indication: THROMBOLYSIS
     Dosage: SEE IMAGE
     Route: 042
     Dates: start: 20070203
  6. HEPARIN [Suspect]
     Indication: THROMBOLYSIS
     Dosage: SEE IMAGE
     Route: 042
     Dates: start: 20070205
  7. ATORVASTATIN CALCIUM [Concomitant]
  8. BISOPROLOL FUMARATE [Concomitant]
  9. MAGNESIUM (MAGNESIUM) [Concomitant]
  10. METOCLOPRAMIDE [Concomitant]
  11. METOPROLOL TARTRATE [Concomitant]
  12. MORPHINE [Concomitant]
  13. NICOTINE [Concomitant]
  14. NITROCINE (GLYCERYL TRINITIRATE) [Concomitant]
  15. ONDANSETRON HCL [Concomitant]
  16. RAMIPRIL [Concomitant]
  17. REOPRO [Concomitant]
  18. SERETIDE (FLUTICASONE PROPIONATE, SALMETEROL XINAFOATE) [Concomitant]
  19. SPIRIVA [Concomitant]
  20. TEMAZEPAM [Concomitant]

REACTIONS (4)
  - GASTROINTESTINAL HAEMORRHAGE [None]
  - HAEMATOMA [None]
  - RENAL FAILURE ACUTE [None]
  - RETROPERITONEAL HAEMORRHAGE [None]
